FAERS Safety Report 13910405 (Version 1)
Quarter: 2017Q3

REPORT INFORMATION
  Report Type: Spontaneous
  Country: US (occurrence: US)
  Receive Date: 20170828
  Receipt Date: 20170828
  Transmission Date: 20171127
  Serious: No
  Sender: FDA-Public Use
  Company Number: US-ALLERGAN-1000087160

PATIENT
  Age: 29 Year
  Sex: Female
  Weight: 81.64 kg

DRUGS (3)
  1. FETZIMA [Suspect]
     Active Substance: LEVOMILNACIPRAN HYDROCHLORIDE
     Dosage: 40 MG, QD
     Dates: start: 20160822, end: 20160825
  2. LAMICTAL [Concomitant]
     Active Substance: LAMOTRIGINE
     Indication: AFFECTIVE DISORDER
     Dosage: UNK
     Dates: end: 20160825
  3. FETZIMA [Suspect]
     Active Substance: LEVOMILNACIPRAN HYDROCHLORIDE
     Indication: DEPRESSION
     Dosage: 20 MG DAILY
     Route: 065
     Dates: start: 20160820, end: 20160821

REACTIONS (5)
  - Pruritus [Recovering/Resolving]
  - Rash [Recovering/Resolving]
  - Burning sensation [Recovering/Resolving]
  - Pyrexia [Recovering/Resolving]
  - Rash papular [Recovering/Resolving]

NARRATIVE: CASE EVENT DATE: 20160822
